FAERS Safety Report 12310387 (Version 1)
Quarter: 2016Q2

REPORT INFORMATION
  Report Type: Spontaneous
  Country: US (occurrence: US)
  Receive Date: 20160427
  Receipt Date: 20160427
  Transmission Date: 20160815
  Serious: No
  Sender: FDA-Public Use
  Company Number: US-MYLANLABS-2015M1033863

PATIENT
  Age: 56 Year
  Sex: Female
  Weight: 52.61 kg

DRUGS (4)
  1. LORAZEPAM TABLETS, USP [Suspect]
     Active Substance: LORAZEPAM
     Indication: ANXIETY
  2. LORAZEPAM TABLETS, USP [Suspect]
     Active Substance: LORAZEPAM
     Indication: INSOMNIA
     Dosage: 0.25 MG, BID
     Route: 048
  3. LIPID MODIFYING AGENTS [Concomitant]
     Active Substance: UNSPECIFIED INGREDIENT
     Indication: BLOOD CHOLESTEROL
     Dosage: UNK
     Dates: start: 201506
  4. NEXIUM [Concomitant]
     Active Substance: ESOMEPRAZOLE MAGNESIUM
     Indication: GASTROOESOPHAGEAL REFLUX DISEASE
     Dosage: UNK

REACTIONS (1)
  - Drug ineffective [Recovered/Resolved]

NARRATIVE: CASE EVENT DATE: 20151001
